FAERS Safety Report 17804040 (Version 2)
Quarter: 2020Q2

REPORT INFORMATION
  Report Type: Spontaneous
  Country: DK (occurrence: DK)
  Receive Date: 20200519
  Receipt Date: 20200617
  Transmission Date: 20200714
  Serious: Yes (Hospitalization, Other)
  Sender: FDA-Public Use
  Company Number: DK-JNJFOC-20200515352

PATIENT
  Age: 88 Year
  Sex: Female

DRUGS (6)
  1. PARACETAMOL [Concomitant]
     Active Substance: ACETAMINOPHEN
     Dosage: OCCASIONALLY
  2. PANTOPRAZOLE [Concomitant]
     Active Substance: PANTOPRAZOLE
  3. OESTRADIOL [ESTRADIOL] [Concomitant]
     Active Substance: ESTRADIOL
     Route: 067
  4. RIVAROXABAN [Suspect]
     Active Substance: RIVAROXABAN
     Indication: ATRIAL FIBRILLATION
     Dosage: 20 MG, QD
     Route: 048
  5. METOPROLOL. [Concomitant]
     Active Substance: METOPROLOL
     Indication: HEART RATE IRREGULAR
  6. AMIODARONE [Interacting]
     Active Substance: AMIODARONE
     Dosage: UNK

REACTIONS (7)
  - Renal impairment [Unknown]
  - Gastrointestinal disorder [Unknown]
  - Drug interaction [Recovering/Resolving]
  - Anticoagulation drug level increased [Recovered/Resolved]
  - Anticoagulation drug level above therapeutic [Recovered/Resolved]
  - International normalised ratio increased [Recovered/Resolved]
  - Treatment failure [Unknown]
